FAERS Safety Report 20006839 (Version 1)
Quarter: 2021Q4

REPORT INFORMATION
  Report Type: Spontaneous
  Country: US (occurrence: US)
  Receive Date: 20211028
  Receipt Date: 20211028
  Transmission Date: 20220303
  Serious: No
  Sender: FDA-Public Use
  Company Number: US-PFIZER INC-202101395404

PATIENT
  Age: 13 Year
  Sex: Female
  Weight: 54.42 kg

DRUGS (1)
  1. EUCRISA [Suspect]
     Active Substance: CRISABOROLE
     Indication: Rash erythematous
     Dosage: UNK
     Dates: start: 2021

REACTIONS (3)
  - Rash [Not Recovered/Not Resolved]
  - Application site pain [Unknown]
  - Off label use [Unknown]

NARRATIVE: CASE EVENT DATE: 20210101
